FAERS Safety Report 12690540 (Version 1)
Quarter: 2016Q3

REPORT INFORMATION
  Report Type: Spontaneous
  Country: IT (occurrence: IT)
  Receive Date: 20160826
  Receipt Date: 20160826
  Transmission Date: 20161109
  Serious: Yes (Other)
  Sender: FDA-Public Use
  Company Number: IT-ELI_LILLY_AND_COMPANY-IT201608009785

PATIENT
  Age: 59 Year
  Sex: Female

DRUGS (7)
  1. CLOPIXOL                           /00876702/ [Suspect]
     Active Substance: ZUCLOPENTHIXOL ACETATE
     Indication: SCHIZOPHRENIA
     Dosage: 50 MG, UNK
     Route: 048
  2. TAVOR (LORAZEPAM) [Suspect]
     Active Substance: LORAZEPAM
     Indication: ANXIETY
     Dosage: 3 DF, QD
     Route: 048
     Dates: start: 20160708
  3. CALCIUM CARBONATE W/COLECALCIFEROL [Concomitant]
     Active Substance: CALCIUM CARBONATE\CHOLECALCIFEROL
     Indication: HYPOCALCAEMIA
     Dosage: 1 DF; UNK
     Route: 048
     Dates: start: 20141103
  4. GLAMIDOLO [Concomitant]
     Indication: GLAUCOMA
     Dosage: 2 DF, UNKNOWN
     Route: 047
     Dates: start: 20080927
  5. ZYPREXA [Suspect]
     Active Substance: OLANZAPINE
     Indication: SCHIZOPHRENIA
     Dosage: 10 MG, UNKNOWN
     Route: 065
  6. ZYPREXA [Suspect]
     Active Substance: OLANZAPINE
     Dosage: 3 DF, QD
     Route: 048
     Dates: start: 20160708
  7. TALOFEN [Suspect]
     Active Substance: PROMAZINE HYDROCHLORIDE
     Indication: PSYCHOMOTOR HYPERACTIVITY
     Dosage: 15 DF, QD
     Route: 048
     Dates: start: 20160708

REACTIONS (1)
  - Hyponatraemia [Recovering/Resolving]
